FAERS Safety Report 6555116-0 (Version None)
Quarter: 2010Q1

REPORT INFORMATION
  Report Type: 
  Country: None (occurrence: None)
  Receive Date: 20100126
  Receipt Date: 20100126
  Transmission Date: 20100710
  Serious: Yes (Hospitalization, Disabling, Other)
  Sender: FDA-Public Use
  Company Number: None

PATIENT
  Sex: Male
  Weight: 61.2356 kg

DRUGS (2)
  1. CLONAZEPAM [Suspect]
     Dosage: 1   1
     Dates: start: 20091229
  2. BENZTROPINE MESYLATE [Suspect]
     Dosage: 1   1
     Dates: start: 20091229

REACTIONS (3)
  - ANXIETY [None]
  - MUSCULAR WEAKNESS [None]
  - MUSCULOSKELETAL STIFFNESS [None]
